FAERS Safety Report 15616910 (Version 1)
Quarter: 2018Q4

REPORT INFORMATION
  Report Type: Spontaneous
  Country: US (occurrence: US)
  Receive Date: 20181109
  Receipt Date: 20181109
  Transmission Date: 20190205
  Serious: Yes (Other)
  Sender: FDA-Public Use
  Company Number: None

PATIENT
  Age: 67 Year
  Sex: Female
  Weight: 75.3 kg

DRUGS (9)
  1. NEW SKIN BANDAGE [Suspect]
     Active Substance: BENZETHONIUM CHLORIDE
     Indication: WOUND
     Route: 061
     Dates: start: 20180711, end: 20180711
  2. ST. JOHNS WORT MELATONIN/PRESERVATIVE FREE [Concomitant]
  3. THERATEARS [Concomitant]
     Active Substance: CARBOXYMETHYLCELLULOSE SODIUM
  4. MECLAZINE [Concomitant]
  5. ZYRTEC [Concomitant]
     Active Substance: CETIRIZINE HYDROCHLORIDE
  6. TYLENOL [Concomitant]
     Active Substance: ACETAMINOPHEN
  7. ARM+HAMMER SIMPLY SALINE SPRAY [Concomitant]
  8. MULTIPLE VIT-MIN. [Concomitant]
  9. NATURE-THROID [Concomitant]
     Active Substance: THYROID, PORCINE

REACTIONS (4)
  - Wound infection [None]
  - Application site pain [None]
  - Scar [None]
  - Skin discolouration [None]

NARRATIVE: CASE EVENT DATE: 20180705
